FAERS Safety Report 7779507-5 (Version None)
Quarter: 2011Q3

REPORT INFORMATION
  Report Type: 
  Country: None (occurrence: None)
  Receive Date: 20110927
  Receipt Date: 20110914
  Transmission Date: 20111222
  Serious: Yes (Hospitalization)
  Sender: FDA-Public Use
  Company Number: JP-AMGEN-JPNSP2011048562

PATIENT
  Age: 81 Year
  Sex: Male
  Weight: 42 kg

DRUGS (13)
  1. PREDNISOLONE [Concomitant]
     Dosage: 3.5 MG, 1X/DAY
     Dates: start: 20110416, end: 20110617
  2. ENBREL [Suspect]
     Indication: RHEUMATOID ARTHRITIS
     Dosage: 50 MG, WEEKLY
     Route: 058
     Dates: start: 20110521, end: 20110618
  3. RHEUMATREX [Suspect]
     Dosage: 8 MG, WEEKLY
     Route: 048
     Dates: start: 20110319, end: 20110618
  4. PREDNISOLONE [Concomitant]
     Dosage: 5 MG, 1X/DAY
     Dates: start: 20110628
  5. RHEUMATREX [Suspect]
     Indication: RHEUMATOID ARTHRITIS
     Dosage: 4 MG, WEEKLY
     Route: 048
     Dates: start: 20110108, end: 20110121
  6. PREDNISOLONE [Concomitant]
     Dosage: 4 MG, 1X/DAY
     Dates: start: 20110108, end: 20110415
  7. PREDNISOLONE [Concomitant]
     Dosage: 3 MG, 1X/DAY
     Dates: start: 20110618, end: 20110627
  8. PROGRAF [Suspect]
     Dosage: 0.5 MG, 1X/DAY
     Dates: start: 20110108, end: 20110520
  9. ACTONEL [Concomitant]
     Dosage: 17.5 MG, WEEKLY
     Dates: start: 20110416
  10. CELECOXIB [Concomitant]
     Dosage: 400 MG, 2X/DAY
     Dates: start: 20110108, end: 20110521
  11. RHEUMATREX [Suspect]
     Dosage: 6 MG, WEEKLY
     Route: 048
     Dates: start: 20110122, end: 20110318
  12. PROGRAF [Suspect]
     Dosage: 1 MG, 1X/DAY
     Dates: start: 20110521
  13. RHEUMATREX [Suspect]
     Dosage: 4 MG, WEEKLY
     Route: 048
     Dates: start: 20110623, end: 20110623

REACTIONS (5)
  - DIZZINESS [None]
  - NAUSEA [None]
  - DECREASED APPETITE [None]
  - INTERSTITIAL LUNG DISEASE [None]
  - DEHYDRATION [None]
